FAERS Safety Report 9630959 (Version 1)
Quarter: 2013Q4

REPORT INFORMATION
  Report Type: Spontaneous
  Country: US (occurrence: None)
  Receive Date: 20131015
  Receipt Date: 20131015
  Transmission Date: 20140711
  Serious: Yes (Hospitalization)
  Sender: FDA-Public Use
  Company Number: AUR-APL-2013-08187

PATIENT
  Age: 15 Year
  Sex: Female

DRUGS (3)
  1. PIPERACILLIN\TAZOBACTAM [Suspect]
     Indication: NEUTROPENIA
  2. VANCOMYCIN [Concomitant]
  3. METRONIDAZOLE [Concomitant]

REACTIONS (5)
  - Abdominal pain [None]
  - Diarrhoea [None]
  - Pyrexia [None]
  - Neutropenia [None]
  - Blood creatinine increased [None]
